FAERS Safety Report 15897350 (Version 1)
Quarter: 2019Q1

REPORT INFORMATION
  Report Type: Report from Study
  Country: FR (occurrence: FR)
  Receive Date: 20190131
  Receipt Date: 20190131
  Transmission Date: 20190417
  Serious: Yes (Hospitalization, Other)
  Sender: FDA-Public Use
  Company Number: FR-SPECTRUM PHARMACEUTICALS, INC.-19-B-FR-00037

PATIENT
  Sex: Female

DRUGS (2)
  1. BELEODAQ [Suspect]
     Active Substance: BELINOSTAT
     Dosage: 1000 MG/M2, UNK
     Route: 042
     Dates: start: 20190114, end: 20190114
  2. BELEODAQ [Suspect]
     Active Substance: BELINOSTAT
     Indication: PERIPHERAL T-CELL LYMPHOMA UNSPECIFIED
     Dosage: 1000 MG/M2, UNK
     Route: 042
     Dates: start: 20181217

REACTIONS (3)
  - Sinus tachycardia [Recovered/Resolved]
  - Tachycardia [Recovered/Resolved]
  - Vomiting [Unknown]

NARRATIVE: CASE EVENT DATE: 20181221
